FAERS Safety Report 19190215 (Version 2)
Quarter: 2021Q2

REPORT INFORMATION
  Report Type: Spontaneous
  Country: JP (occurrence: JP)
  Receive Date: 20210428
  Receipt Date: 20210618
  Transmission Date: 20210717
  Serious: Yes (Hospitalization)
  Sender: FDA-Public Use
  Company Number: JP-OTSUKA-2020_014436

PATIENT
  Age: 14 Year
  Sex: Male

DRUGS (4)
  1. ABILIFY [Suspect]
     Active Substance: ARIPIPRAZOLE
     Indication: AUTISM SPECTRUM DISORDER
     Dosage: 1 MG, QD
     Route: 048
     Dates: start: 20190831
  2. ABILIFY [Suspect]
     Active Substance: ARIPIPRAZOLE
     Indication: IRRITABILITY
  3. BAYASPIRIN [Concomitant]
     Active Substance: ASPIRIN
     Indication: CARDIAC DISORDER
     Dosage: 100/DAY, FOR 5 YEARS OR MORE
     Route: 048
  4. BAYASPIRIN [Concomitant]
     Active Substance: ASPIRIN
     Indication: PROSTHETIC VESSEL IMPLANTATION

REACTIONS (3)
  - Diabetes mellitus [Recovered/Resolved]
  - Chest wall abscess [Unknown]
  - Bacteraemia [Unknown]

NARRATIVE: CASE EVENT DATE: 20200512
